FAERS Safety Report 8150711-X (Version None)
Quarter: 2012Q1

REPORT INFORMATION
  Report Type: 
  Country: None (occurrence: None)
  Receive Date: 20120220
  Receipt Date: 20120217
  Transmission Date: 20120608
  Serious: Yes (Death, Other)
  Sender: FDA-Public Use
  Company Number: PHHY2012AU013423

PATIENT
  Sex: Female

DRUGS (1)
  1. ZOLEDRONOC ACID [Suspect]
     Dosage: 3.3 MG, UNK
     Route: 042
     Dates: start: 20110322

REACTIONS (3)
  - NEOPLASM MALIGNANT [None]
  - DEATH [None]
  - DRUG PRESCRIBING ERROR [None]
